FAERS Safety Report 4490950-2 (Version None)
Quarter: 2004Q4

REPORT INFORMATION
  Report Type: 
  Country: None (occurrence: None)
  Receive Date: 20041027
  Receipt Date: 20041014
  Transmission Date: 20050328
  Serious: Yes (Death)
  Sender: FDA-Public Use
  Company Number: 2004239378ES

PATIENT
  Age: 33 Year

DRUGS (5)
  1. IDARUBICIN HCL [Suspect]
     Indication: ACUTE PROMYELOCYTIC LEUKAEMIA
     Dosage: 12 MG/M2, QD, IV BOLUS SEE IMAGE
     Route: 040
  2. METHOTREXATE [Suspect]
     Indication: ACUTE PROMYELOCYTIC LEUKAEMIA
     Dosage: 15 MG/M2, WEEKLY, INTRAMUSCULAR
     Route: 030
  3. MITOXANTRONE [Suspect]
     Indication: ACUTE PROMYELOCYTIC LEUKAEMIA
     Dosage: 10 MG/M2,  QD, IV BOLUS
     Route: 040
  4. ATRA(ALL-TRANS-RETINOIC ACID) [Suspect]
     Indication: ACUTE PROMYELOCYTIC LEUKAEMIA
     Dosage: 45 MG/M2, QD, 15 DAYS Q3MONTHS, ORAL
     Route: 048
  5. MERCAPTOPURINE [Suspect]
     Indication: ACUTE PROMYELOCYTIC LEUKAEMIA
     Dosage: 50 MG/M2, QD, ORAL
     Route: 048

REACTIONS (3)
  - CEREBRAL HAEMORRHAGE [None]
  - DRUG TOXICITY [None]
  - EPILEPSY [None]
